FAERS Safety Report 9484692 (Version 1)
Quarter: 2013Q3

REPORT INFORMATION
  Report Type: Spontaneous
  Country: US (occurrence: US)
  Receive Date: 20130828
  Receipt Date: 20130828
  Transmission Date: 20140515
  Serious: No
  Sender: FDA-Public Use
  Company Number: US-BAYER-2013-104250

PATIENT
  Sex: 0

DRUGS (2)
  1. ALEVE CAPLET [Suspect]
     Indication: DISCOMFORT
  2. ALEVE CAPLET [Suspect]
     Indication: MALAISE

REACTIONS (1)
  - Drug ineffective [None]
